FAERS Safety Report 4539606-8 (Version None)
Quarter: 2004Q4

REPORT INFORMATION
  Report Type: 
  Country: None (occurrence: None)
  Receive Date: 20041222
  Receipt Date: 20041206
  Transmission Date: 20050328
  Serious: Yes (Hospitalization)
  Sender: FDA-Public Use
  Company Number: 204927

PATIENT
  Sex: Male
  Weight: 2.0412 kg

DRUGS (3)
  1. AVONEX [Suspect]
     Indication: DRUG EXPOSURE DURING PREGNANCY
     Dosage: IM
     Route: 030
     Dates: end: 20040101
  2. ZOLOFT [Concomitant]
  3. DETROL [Concomitant]

REACTIONS (18)
  - APGAR SCORE LOW [None]
  - ATELECTASIS [None]
  - BRAIN OEDEMA [None]
  - CAESAREAN SECTION [None]
  - CEREBRAL DISORDER [None]
  - CONGENITAL ATRIAL SEPTAL DEFECT [None]
  - CONVULSION NEONATAL [None]
  - DRUG EXPOSURE DURING PREGNANCY [None]
  - ELECTROENCEPHALOGRAM ABNORMAL [None]
  - HEART RATE DECREASED [None]
  - HYPERGLYCAEMIA [None]
  - NEONATAL ASPIRATION [None]
  - NEONATAL HYPOTENSION [None]
  - NEONATAL HYPOXIA [None]
  - NEONATAL RESPIRATORY DEPRESSION [None]
  - PULMONARY FUNCTION TEST DECREASED [None]
  - SEPSIS [None]
  - VENTRICULAR HYPERTROPHY [None]
